FAERS Safety Report 9910106 (Version 4)
Quarter: 2014Q2

REPORT INFORMATION
  Report Type: Spontaneous
  Country: GB (occurrence: GB)
  Receive Date: 20140219
  Receipt Date: 20140502
  Transmission Date: 20141212
  Serious: Yes (Hospitalization, Other)
  Sender: FDA-Public Use
  Company Number: GB-SA-2014SA018138

PATIENT
  Age: 61 Year
  Sex: Male
  Weight: 96.5 kg

DRUGS (5)
  1. DRONEDARONE [Suspect]
     Indication: ARRHYTHMIA
     Dosage: UNK
     Route: 048
     Dates: start: 201210, end: 201401
  2. XARELTO [Interacting]
     Indication: THROMBOSIS PROPHYLAXIS
     Dosage: UNK
     Route: 065
     Dates: start: 201307
  3. XARELTO [Interacting]
     Indication: EMBOLISM VENOUS
     Dosage: UNK
     Route: 065
     Dates: start: 201307
  4. XARELTO [Interacting]
     Indication: THROMBOSIS PROPHYLAXIS
  5. XARELTO [Interacting]
     Indication: EMBOLISM VENOUS

REACTIONS (6)
  - Heart rate increased [Unknown]
  - Palpitations [Unknown]
  - Hyperhidrosis [Unknown]
  - Liver function test abnormal [Recovered/Resolved]
  - Drug interaction [Unknown]
  - Cardiac disorder [Unknown]
